FAERS Safety Report 11060654 (Version 1)
Quarter: 2015Q2

REPORT INFORMATION
  Report Type: Report from Study
  Country: GR (occurrence: GR)
  Receive Date: 20150423
  Receipt Date: 20150423
  Transmission Date: 20150821
  Serious: Yes (Other)
  Sender: FDA-Public Use
  Company Number: PHHY2015GR041997

PATIENT
  Sex: Female

DRUGS (3)
  1. CHAMOMILE [Concomitant]
     Active Substance: CHAMOMILE
     Indication: PRODUCT USED FOR UNKNOWN INDICATION
     Route: 065
  2. PURE BAKING SODA [Concomitant]
     Active Substance: SODIUM BICARBONATE
     Indication: PRODUCT USED FOR UNKNOWN INDICATION
     Route: 065
  3. AFINITOR [Suspect]
     Active Substance: EVEROLIMUS
     Indication: PRODUCT USED FOR UNKNOWN INDICATION
     Route: 065

REACTIONS (10)
  - Peripheral swelling [Unknown]
  - Breast swelling [Unknown]
  - Acne [Unknown]
  - Fatigue [Unknown]
  - Mobility decreased [Unknown]
  - Tooth loss [Unknown]
  - Pruritus generalised [Unknown]
  - Blister [Unknown]
  - Alopecia [Unknown]
  - Dysstasia [Unknown]

NARRATIVE: CASE EVENT DATE: 20150408
